FAERS Safety Report 9276642 (Version 2)
Quarter: 2013Q2

REPORT INFORMATION
  Report Type: Spontaneous
  Country: US (occurrence: US)
  Receive Date: 20130507
  Receipt Date: 20130507
  Transmission Date: 20140414
  Serious: Yes (Other)
  Sender: FDA-Public Use
  Company Number: PHHY2013US025386

PATIENT
  Age: 56 Year
  Sex: Female

DRUGS (1)
  1. BENAZEPRIL, HYDROCHLOROTHIAZIDE [Suspect]
     Indication: HYPERTENSION
     Dosage: 1 DF (20 MG BENAZEPRIL AND 25 MG HYDROCHLOROTHIAZIDE), DAILY
     Route: 048
     Dates: start: 20130207, end: 20130317

REACTIONS (4)
  - Dry throat [Not Recovered/Not Resolved]
  - Drug intolerance [Not Recovered/Not Resolved]
  - Cough [Not Recovered/Not Resolved]
  - Headache [Not Recovered/Not Resolved]
